FAERS Safety Report 7076923-4 (Version None)
Quarter: 2010Q4

REPORT INFORMATION
  Report Type: 
  Country: None (occurrence: None)
  Receive Date: 20101101
  Receipt Date: 20101019
  Transmission Date: 20110411
  Serious: Yes (Death, Hospitalization, Other)
  Sender: FDA-Public Use
  Company Number: US-PAR PHARMACEUTICAL, INC-2010SCPR002254

PATIENT
  Age: 71 Year
  Sex: Female

DRUGS (6)
  1. VERAPAMIL [Suspect]
     Indication: HYPERTENSION
     Dosage: 80 MG, TID
     Route: 065
  2. ATORVASTATIN [Suspect]
     Dosage: 10 MG, DAILY
     Route: 065
  3. ATORVASTATIN [Suspect]
     Dosage: 20 MG, DAILY
     Route: 065
  4. INSULIN [Concomitant]
     Dosage: UNK
     Route: 065
  5. LISINOPRIL [Concomitant]
     Dosage: UNK
     Route: 065
  6. FAMOTIDINE [Concomitant]
     Dosage: UNK
     Route: 065

REACTIONS (8)
  - ACUTE HEPATIC FAILURE [None]
  - DEATH [None]
  - DISSEMINATED INTRAVASCULAR COAGULATION [None]
  - DRUG INTERACTION [None]
  - METABOLIC ACIDOSIS [None]
  - MULTI-ORGAN FAILURE [None]
  - RENAL FAILURE [None]
  - RHABDOMYOLYSIS [None]
